FAERS Safety Report 4855947-9 (Version None)
Quarter: 2005Q4

REPORT INFORMATION
  Report Type: 
  Country: None (occurrence: None)
  Receive Date: 20051216
  Receipt Date: 20051206
  Transmission Date: 20060501
  Serious: Yes (Other)
  Sender: FDA-Public Use
  Company Number: US-JNJFOC-20051202843

PATIENT
  Sex: Female
  Weight: 49.9 kg

DRUGS (3)
  1. FENTANYL [Suspect]
     Route: 062
  2. PRILOSEC [Concomitant]
  3. ATIVAN [Concomitant]
     Indication: INSOMNIA

REACTIONS (4)
  - DEHYDRATION [None]
  - HYPERHIDROSIS [None]
  - TREMOR [None]
  - VOMITING [None]
